FAERS Safety Report 17905173 (Version 2)
Quarter: 2021Q2

REPORT INFORMATION
  Report Type: Spontaneous
  Country: US (occurrence: US)
  Receive Date: 20200616
  Receipt Date: 20210617
  Transmission Date: 20210717
  Serious: No
  Sender: FDA-Public Use
  Company Number: US-ROCHE-2470152

PATIENT
  Sex: Male

DRUGS (14)
  1. TIZANIDINE HCL [Concomitant]
     Active Substance: TIZANIDINE HYDROCHLORIDE
  2. VITAMIN C [Concomitant]
     Active Substance: ASCORBIC ACID
  3. AMLODIPINE BESYLATE. [Concomitant]
     Active Substance: AMLODIPINE BESYLATE
  4. PROAIR HFA [Concomitant]
     Active Substance: ALBUTEROL SULFATE
  5. TERAZOSIN HCL [Concomitant]
     Active Substance: TERAZOSIN HYDROCHLORIDE
  6. HUMIRA [Concomitant]
     Active Substance: ADALIMUMAB
  7. MONTELUKAST SODIUM. [Concomitant]
     Active Substance: MONTELUKAST SODIUM
  8. CHOLECALCIFEROL [Concomitant]
     Active Substance: CHOLECALCIFEROL
  9. FOLIC ACID. [Concomitant]
     Active Substance: FOLIC ACID
  10. METHOTREXATE. [Concomitant]
     Active Substance: METHOTREXATE
  11. PREDNISONE. [Concomitant]
     Active Substance: PREDNISONE
  12. ACTEMRA [Suspect]
     Active Substance: TOCILIZUMAB
     Indication: RHEUMATOID ARTHRITIS
     Dosage: INFUSE 800 MG INTRAVENOUS IN 100 ML OF NS OVER 60 MINUTES EVERY 4 WEEKS.
     Route: 058
     Dates: start: 20190807
  13. AZELASTINE HCL [Concomitant]
     Active Substance: AZELASTINE HYDROCHLORIDE
  14. GABAPENTIN. [Concomitant]
     Active Substance: GABAPENTIN

REACTIONS (7)
  - Joint swelling [Unknown]
  - Arthralgia [Unknown]
  - Weight increased [Unknown]
  - Peripheral swelling [Unknown]
  - Fatigue [Unknown]
  - Pain in extremity [Unknown]
  - Drug ineffective [Unknown]
